FAERS Safety Report 8957177 (Version 1)
Quarter: 2012Q4

REPORT INFORMATION
  Report Type: 
  Country: US (occurrence: US)
  Receive Date: 20121211
  Receipt Date: 20121211
  Transmission Date: 20130627
  Serious: Yes (Other)
  Sender: FDA-Public Use
  Company Number: US-JNJFOC-20121201169

PATIENT
  Age: 36 Year
  Sex: Male

DRUGS (3)
  1. REMICADE [Suspect]
     Indication: CROHN^S DISEASE
     Route: 042
     Dates: start: 201108
  2. REMICADE [Suspect]
     Indication: CROHN^S DISEASE
     Route: 042
     Dates: start: 20121017
  3. REMICADE [Suspect]
     Indication: CROHN^S DISEASE
     Dosage: 2 weeks after 17-OCT-2012
     Route: 042
     Dates: start: 2012

REACTIONS (3)
  - Road traffic accident [Unknown]
  - Intra-abdominal haematoma [Unknown]
  - Inappropriate schedule of drug administration [Unknown]
